FAERS Safety Report 8704593 (Version 9)
Quarter: 2013Q4

REPORT INFORMATION
  Report Type: Report from Study
  Country: CA (occurrence: CA)
  Receive Date: 20120803
  Receipt Date: 20131111
  Transmission Date: 20140711
  Serious: Yes (Hospitalization, Disabling, Other)
  Sender: FDA-Public Use
  Company Number: PHHY2012CA066661

PATIENT
  Age: 34 Year
  Sex: Male

DRUGS (4)
  1. CLOZARIL [Suspect]
     Indication: SCHIZOPHRENIA
     Dosage: UNK
     Route: 048
     Dates: start: 20090625, end: 20120926
  2. CLOZARIL [Suspect]
     Dosage: UNK
     Dates: start: 20121129
  3. LAMICTAL [Concomitant]
     Dosage: UNK UKN, UNK
     Dates: end: 201007
  4. PRISTIQ [Concomitant]
     Dosage: UNK UKN, UNK
     Dates: end: 201203

REACTIONS (3)
  - B precursor type acute leukaemia [Unknown]
  - Acute leukaemia [Unknown]
  - Agranulocytosis [Unknown]
